FAERS Safety Report 21189397 (Version 1)
Quarter: 2022Q3

REPORT INFORMATION
  Report Type: Report from Study
  Country: FR (occurrence: FR)
  Receive Date: 20220809
  Receipt Date: 20220809
  Transmission Date: 20221027
  Serious: Yes (Hospitalization)
  Sender: FDA-Public Use
  Company Number: FR-SA-SAC20220803000352

PATIENT
  Age: 61 Year
  Sex: Female
  Weight: 69 kg

DRUGS (8)
  1. ISATUXIMAB [Suspect]
     Active Substance: ISATUXIMAB
     Indication: Minimal residual disease
     Dosage: 700 MG
     Route: 042
     Dates: start: 20220519, end: 20220519
  2. ISATUXIMAB [Suspect]
     Active Substance: ISATUXIMAB
     Dosage: 700 MG
     Route: 042
     Dates: start: 20220713, end: 20220713
  3. CARFILZOMIB [Suspect]
     Active Substance: CARFILZOMIB
     Indication: Minimal residual disease
     Dosage: 96 MG
     Route: 042
     Dates: start: 20220519, end: 20220519
  4. CARFILZOMIB [Suspect]
     Active Substance: CARFILZOMIB
     Dosage: 96 MG
     Route: 042
     Dates: start: 20220721, end: 20220721
  5. LENALIDOMIDE [Suspect]
     Active Substance: LENALIDOMIDE
     Indication: Minimal residual disease
     Dosage: 25 MG
     Route: 048
     Dates: start: 20220519, end: 20220519
  6. LENALIDOMIDE [Suspect]
     Active Substance: LENALIDOMIDE
     Dosage: 25 MG
     Route: 048
     Dates: start: 20220725, end: 20220725
  7. DEXAMETHASONE [Suspect]
     Active Substance: DEXAMETHASONE
     Indication: Minimal residual disease
     Dosage: 40 MG
     Route: 048
     Dates: start: 20220519, end: 20220519
  8. DEXAMETHASONE [Suspect]
     Active Substance: DEXAMETHASONE
     Dosage: 40 MG
     Route: 048
     Dates: start: 20220721, end: 20220721

REACTIONS (1)
  - Cystitis [Recovered/Resolved]

NARRATIVE: CASE EVENT DATE: 20220728
